FAERS Safety Report 8803920 (Version 3)
Quarter: 2019Q3

REPORT INFORMATION
  Report Type: Spontaneous
  Country: US (occurrence: US)
  Receive Date: 20120924
  Receipt Date: 20190808
  Transmission Date: 20191005
  Serious: No
  Sender: FDA-Public Use
  Company Number: US-PFIZER INC-2012233333

PATIENT
  Age: 72 Year
  Sex: Female
  Weight: 56.69 kg

DRUGS (4)
  1. PREMARIN [Suspect]
     Active Substance: ESTROGENS, CONJUGATED
     Indication: VAGINAL PROLAPSE
     Dosage: UNK, 2X/WEEK
     Route: 067
  2. CLONAZEPAM. [Concomitant]
     Active Substance: CLONAZEPAM
     Indication: LIMB DISCOMFORT
     Dosage: 0.5 MG (ONE AND HALF TABLET ), 1X/DAY
  3. PREMARIN [Suspect]
     Active Substance: ESTROGENS, CONJUGATED
     Dosage: 0.5 G, (TWICE IN A DAY X 3 TIMES A WEEK)
  4. GABAPENTIN. [Concomitant]
     Active Substance: GABAPENTIN
     Indication: LIMB DISCOMFORT
     Dosage: 600 MG (FOUR TABLETS), 1X/DAY (AT NIGHT)

REACTIONS (4)
  - Ligament rupture [Unknown]
  - Off label use [Unknown]
  - Tendonitis [Unknown]
  - Back injury [Unknown]

NARRATIVE: CASE EVENT DATE: 2011
